FAERS Safety Report 5908902-1 (Version None)
Quarter: 2008Q4

REPORT INFORMATION
  Report Type: 
  Country: None (occurrence: None)
  Receive Date: 20081001
  Receipt Date: 20080917
  Transmission Date: 20090506
  Serious: Yes (Hospitalization)
  Sender: FDA-Public Use
  Company Number: CLOF-10696

PATIENT
  Age: 69 Year
  Sex: Male
  Weight: 105 kg

DRUGS (17)
  1. CLOFARABINE (CLOFARABINE) TABLET [Suspect]
     Indication: ACUTE LEUKAEMIA
     Dosage: 55 MG, QDX5, ORAL
     Route: 048
     Dates: start: 20070924, end: 20070928
  2. TOPROL-XL [Concomitant]
  3. ALBUTEROL [Concomitant]
  4. FLONASE [Concomitant]
  5. ASPIRIN [Concomitant]
  6. PLAVIX [Concomitant]
  7. NORVASC [Concomitant]
  8. PROCRIT [Concomitant]
  9. LEVAQUIN [Concomitant]
  10. ATARAX [Concomitant]
  11. SPORANOX [Concomitant]
  12. VALTREX [Concomitant]
  13. EZETIMIBE [Concomitant]
  14. SIMVASTATIN [Concomitant]
  15. MILK OF MAGNESIA TAB [Concomitant]
  16. CEPHALEXIN [Concomitant]
  17. LISINOPRIL [Concomitant]

REACTIONS (27)
  - ATELECTASIS [None]
  - BIOPSY SKIN ABNORMAL [None]
  - BLOOD LACTATE DEHYDROGENASE INCREASED [None]
  - BUNDLE BRANCH BLOCK RIGHT [None]
  - CARDIAC FAILURE CONGESTIVE [None]
  - CARDIOMYOPATHY [None]
  - DEHYDRATION [None]
  - ENTEROBACTER SEPSIS [None]
  - FUSARIUM INFECTION [None]
  - HAEMOPHILUS INFECTION [None]
  - LUNG NEOPLASM [None]
  - MYELODYSPLASTIC SYNDROME [None]
  - MYOCARDIAL INFARCTION [None]
  - PALMAR-PLANTAR ERYTHRODYSAESTHESIA SYNDROME [None]
  - PLEURAL EFFUSION [None]
  - PLEURAL FIBROSIS [None]
  - PNEUMONIA FUNGAL [None]
  - PSEUDOMONAL SEPSIS [None]
  - RENAL FAILURE ACUTE [None]
  - RESPIRATORY FAILURE [None]
  - SEPSIS SYNDROME [None]
  - SINUS TACHYCARDIA [None]
  - SINUSITIS FUNGAL [None]
  - SPUTUM CULTURE POSITIVE [None]
  - SUPRAVENTRICULAR TACHYCARDIA [None]
  - WHITE BLOOD CELL COUNT DECREASED [None]
  - X-RAY ABNORMAL [None]
